FAERS Safety Report 6449060-7 (Version None)
Quarter: 2009Q4

REPORT INFORMATION
  Report Type: 
  Country: None (occurrence: None)
  Receive Date: 20091120
  Receipt Date: 20090810
  Transmission Date: 20100525
  Serious: Yes (Other)
  Sender: FDA-Public Use
  Company Number: IE-BAYER-200939692GPV

PATIENT
  Age: 81 Year
  Sex: Male

DRUGS (1)
  1. NEXAVAR [Suspect]
     Indication: RENAL CELL CARCINOMA
     Dosage: TOTAL DAILY DOSE: 800 MG
     Route: 048
     Dates: start: 20090704

REACTIONS (4)
  - ARTHRALGIA [None]
  - ASTHENIA [None]
  - GINGIVAL ULCERATION [None]
  - NEUROPATHY PERIPHERAL [None]
